FAERS Safety Report 8283530-4 (Version None)
Quarter: 2012Q2

REPORT INFORMATION
  Report Type: 
  Country: None (occurrence: None)
  Receive Date: 20120413
  Receipt Date: 20120410
  Transmission Date: 20120825
  Serious: Yes (Life-Threatening, Hospitalization)
  Sender: FDA-Public Use
  Company Number: MX-B.I. PHARMACEUTICALS,INC./RIDGEFIELD-2012-MX-00122MX

PATIENT
  Age: 67 Year
  Sex: Male

DRUGS (4)
  1. SPIRONOLACTONE [Concomitant]
     Indication: ISCHAEMIC CARDIOMYOPATHY
     Dosage: 25 MG
     Route: 048
  2. ANGIOTENSIN-2 INHIBITOR [Concomitant]
  3. CARVEDILOL [Concomitant]
  4. DABIGATRAN ETEXILATE [Suspect]
     Indication: THROMBOSIS
     Dosage: 300 MG
     Route: 048
     Dates: start: 20120101

REACTIONS (2)
  - EMBOLISM [None]
  - CEREBRAL INFARCTION [None]
